FAERS Safety Report 15525734 (Version 2)
Quarter: 2018Q4

REPORT INFORMATION
  Report Type: Report from Study
  Country: US (occurrence: US)
  Receive Date: 20181019
  Receipt Date: 20181108
  Transmission Date: 20190205
  Serious: Yes (Hospitalization)
  Sender: FDA-Public Use
  Company Number: US-ACTELION-A-NJ2015-126686

PATIENT
  Age: 72 Year
  Sex: Female
  Weight: 58.96 kg

DRUGS (10)
  1. ASPIRIN. [Concomitant]
     Active Substance: ASPIRIN
     Dosage: 81 MG, QD
     Dates: start: 2013
  2. LOSARTAN. [Concomitant]
     Active Substance: LOSARTAN
     Dosage: 100 MG, QD
     Dates: start: 2016, end: 20180905
  3. BREO ELLIPTA [Concomitant]
     Active Substance: FLUTICASONE FUROATE\VILANTEROL TRIFENATATE
     Dosage: UNK, QD
     Route: 055
     Dates: start: 20171004
  4. LEVOTHYROXINE. [Concomitant]
     Active Substance: LEVOTHYROXINE
     Dosage: 175 MCG, QD
     Dates: start: 20180322
  5. TRACLEER [Suspect]
     Active Substance: BOSENTAN
     Indication: PULMONARY ARTERIAL HYPERTENSION
     Dosage: 125 MG, BID
     Route: 048
     Dates: start: 20131118
  6. NIFEDIPINE. [Concomitant]
     Active Substance: NIFEDIPINE
     Dosage: 90 MG, QD
     Dates: start: 2016
  7. ATORVASTATIN [Concomitant]
     Active Substance: ATORVASTATIN
     Dosage: 80 MG, QD
     Dates: start: 2014
  8. VENTOLIN [Concomitant]
     Active Substance: ALBUTEROL SULFATE
     Dosage: UNK, PRN
  9. FUROSEMIDE. [Concomitant]
     Active Substance: FUROSEMIDE
     Dosage: 40 MG, QD
     Dates: start: 20140724
  10. PAROXETINE. [Concomitant]
     Active Substance: PAROXETINE
     Dosage: 20 MG, QD
     Dates: start: 2016

REACTIONS (14)
  - Gastrointestinal haemorrhage [Recovering/Resolving]
  - Packed red blood cell transfusion [Recovering/Resolving]
  - Hypertension [Unknown]
  - Acute kidney injury [Recovering/Resolving]
  - Blood iron decreased [Recovering/Resolving]
  - Dyspnoea [Recovering/Resolving]
  - Renal atrophy [Recovering/Resolving]
  - Cardiac failure congestive [Recovering/Resolving]
  - Blood pressure abnormal [Unknown]
  - Renal artery stenosis [Recovering/Resolving]
  - Occult blood [Recovering/Resolving]
  - Aortic stenosis [Recovering/Resolving]
  - Blood count abnormal [Recovering/Resolving]
  - Gastritis [Unknown]

NARRATIVE: CASE EVENT DATE: 20151027
